FAERS Safety Report 19853018 (Version 1)
Quarter: 2021Q3

REPORT INFORMATION
  Report Type: Spontaneous
  Country: US (occurrence: US)
  Receive Date: 20210919
  Receipt Date: 20210919
  Transmission Date: 20211014
  Serious: No
  Sender: FDA-Public Use
  Company Number: US-SA-2021SA304242

PATIENT
  Age: 18 Year
  Sex: Male

DRUGS (9)
  1. FLUOXETINE [Concomitant]
     Active Substance: FLUOXETINE HYDROCHLORIDE
     Dosage: UNK
  2. GUANFACINE. [Concomitant]
     Active Substance: GUANFACINE
     Dosage: UNK
  3. LORAZEPAM. [Concomitant]
     Active Substance: LORAZEPAM
     Dosage: UNK
  4. HYDROXYZINE [Concomitant]
     Active Substance: HYDROXYZINE HYDROCHLORIDE
     Dosage: UNK
  5. ARIPIPRAZOLE. [Concomitant]
     Active Substance: ARIPIPRAZOLE
     Dosage: UNK
  6. DUPIXENT [Suspect]
     Active Substance: DUPILUMAB
     Indication: DERMATITIS
     Dosage: 300 MG, QOW
     Route: 058
     Dates: start: 20201007
  7. DIVALPROEX [Concomitant]
     Active Substance: DIVALPROEX SODIUM
     Dosage: UNK
  8. PIMECROLIMUS. [Concomitant]
     Active Substance: PIMECROLIMUS
     Dosage: UNK
  9. SPIRONOLACTONE. [Concomitant]
     Active Substance: SPIRONOLACTONE
     Dosage: UNK

REACTIONS (3)
  - Eye allergy [Not Recovered/Not Resolved]
  - Dry eye [Not Recovered/Not Resolved]
  - Product use in unapproved indication [Unknown]

NARRATIVE: CASE EVENT DATE: 20201007
